FAERS Safety Report 11725890 (Version 3)
Quarter: 2016Q1

REPORT INFORMATION
  Report Type: Report from Study
  Country: CA (occurrence: CA)
  Receive Date: 20151111
  Receipt Date: 20160117
  Transmission Date: 20160525
  Serious: Yes (Death, Hospitalization, Other)
  Sender: FDA-Public Use
  Company Number: CA-ROCHE-1280533

PATIENT
  Age: 81 Year
  Sex: Female
  Weight: 64.9 kg

DRUGS (8)
  1. ACTEMRA [Suspect]
     Active Substance: TOCILIZUMAB
     Route: 042
     Dates: start: 20130130
  2. ASPIRIN. [Concomitant]
     Active Substance: ASPIRIN
  3. ACTEMRA [Suspect]
     Active Substance: TOCILIZUMAB
     Dosage: DOSE: 7MG/KG
     Route: 042
     Dates: start: 20131017, end: 20150908
  4. ZOPICLONE [Concomitant]
     Active Substance: ZOPICLONE
  5. METHOTREXATE [Concomitant]
     Active Substance: METHOTREXATE
  6. OMEPRAZOLE. [Concomitant]
     Active Substance: OMEPRAZOLE
  7. TYLENOL [Concomitant]
     Active Substance: ACETAMINOPHEN
  8. ACTEMRA [Suspect]
     Active Substance: TOCILIZUMAB
     Indication: RHEUMATOID ARTHRITIS
     Route: 042
     Dates: start: 20120723

REACTIONS (11)
  - Ear infection [Unknown]
  - Jugular vein thrombosis [Fatal]
  - Squamous cell carcinoma [Fatal]
  - Basal cell carcinoma [Recovered/Resolved]
  - Asthenia [Unknown]
  - Pain [Unknown]
  - Drug dose omission [Unknown]
  - Jugular vein thrombosis [Unknown]
  - Rheumatoid arthritis [Unknown]
  - Lower respiratory tract infection [Unknown]
  - Foot deformity [Not Recovered/Not Resolved]

NARRATIVE: CASE EVENT DATE: 201309
